FAERS Safety Report 20722805 (Version 1)
Quarter: 2022Q2

REPORT INFORMATION
  Report Type: Report from Study
  Country: RU (occurrence: RU)
  Receive Date: 20220419
  Receipt Date: 20220419
  Transmission Date: 20220720
  Serious: Yes (Hospitalization)
  Sender: FDA-Public Use
  Company Number: RU-ABBVIE-22K-251-4362208-00

PATIENT
  Age: 34 Year
  Sex: Female
  Weight: 70 kg

DRUGS (4)
  1. UPADACITINIB [Suspect]
     Active Substance: UPADACITINIB
     Indication: Rheumatoid arthritis
     Dosage: DAILY
     Route: 048
     Dates: start: 20210915, end: 20220104
  2. UPADACITINIB [Suspect]
     Active Substance: UPADACITINIB
     Dosage: DAILY
     Route: 048
     Dates: start: 20220115
  3. LEFLUNOMIDE [Concomitant]
     Active Substance: LEFLUNOMIDE
     Indication: Rheumatoid arthritis
     Dosage: DAILY
     Route: 048
     Dates: start: 2019, end: 20220101
  4. CELECOXIB [Concomitant]
     Active Substance: CELECOXIB
     Indication: Rheumatoid arthritis
     Route: 048
     Dates: start: 202101

REACTIONS (1)
  - Uterine polyp [Recovered/Resolved]

NARRATIVE: CASE EVENT DATE: 20220105
